FAERS Safety Report 21042912 (Version 1)
Quarter: 2022Q3

REPORT INFORMATION
  Report Type: Spontaneous
  Country: IT (occurrence: IT)
  Receive Date: 20220705
  Receipt Date: 20220705
  Transmission Date: 20221027
  Serious: Yes (Death, Life-Threatening, Other)
  Sender: FDA-Public Use
  Company Number: IT-AMGEN-ITASP2022110259

PATIENT

DRUGS (1)
  1. CARFILZOMIB [Suspect]
     Active Substance: CARFILZOMIB
     Indication: Plasma cell myeloma refractory
     Dosage: UNK
     Route: 065

REACTIONS (51)
  - Death [Fatal]
  - Thrombocytopenia [Unknown]
  - Acute kidney injury [Unknown]
  - Acute pulmonary oedema [Unknown]
  - Cholangitis [Unknown]
  - Blood cholesterol increased [Unknown]
  - Blood creatinine increased [Unknown]
  - Diarrhoea [Unknown]
  - Cardiac failure [Unknown]
  - COVID-19 pneumonia [Unknown]
  - Pericardial effusion [Unknown]
  - Periodontal disease [Unknown]
  - Rash maculo-papular [Unknown]
  - Sepsis [Unknown]
  - Skin ulcer [Unknown]
  - Embolism [Unknown]
  - Urinary tract infection [Unknown]
  - Urinary tract obstruction [Unknown]
  - Anaemia [Unknown]
  - Neutropenia [Unknown]
  - Therapy partial responder [Unknown]
  - Plasma cell myeloma [Unknown]
  - Phlebitis infective [Unknown]
  - Cerebrovascular accident [Unknown]
  - Syncope [Unknown]
  - Post procedural haemorrhage [Unknown]
  - Dizziness [Unknown]
  - Infection [Unknown]
  - Bronchitis [Unknown]
  - Conduction disorder [Unknown]
  - Cough [Unknown]
  - Hypertension [Unknown]
  - Dyspnoea [Unknown]
  - Pyrexia [Unknown]
  - Influenza like illness [Unknown]
  - Generalised oedema [Unknown]
  - Headache [Unknown]
  - Pharyngitis [Unknown]
  - Hyperglycaemia [Unknown]
  - Myalgia [Unknown]
  - Ear infection [Unknown]
  - Herpes zoster [Unknown]
  - Palpitations [Unknown]
  - Phlebitis [Unknown]
  - Skin infection [Unknown]
  - Renal colic [Unknown]
  - Supraventricular tachycardia [Unknown]
  - Wound infection [Unknown]
  - Diastolic dysfunction [Unknown]
  - Abdominal pain [Unknown]
  - Nausea [Unknown]
